FAERS Safety Report 19179982 (Version 1)
Quarter: 2021Q2

REPORT INFORMATION
  Report Type: Spontaneous
  Country: GR (occurrence: GR)
  Receive Date: 20210426
  Receipt Date: 20210426
  Transmission Date: 20210717
  Serious: Yes (Other)
  Sender: FDA-Public Use
  Company Number: GR-SA-2021SA126823

PATIENT
  Age: 77 Year
  Sex: Female

DRUGS (1)
  1. STILNOX [Suspect]
     Active Substance: ZOLPIDEM TARTRATE

REACTIONS (4)
  - Product availability issue [Unknown]
  - Incorrect product administration duration [Unknown]
  - Withdrawal syndrome [Unknown]
  - Myocardial infarction [Unknown]
